FAERS Safety Report 9032541 (Version 1)
Quarter: 2013Q1

REPORT INFORMATION
  Report Type: Spontaneous
  Country: GB (occurrence: None)
  Receive Date: 20130108
  Receipt Date: 20130108
  Transmission Date: 20140127
  Serious: Yes (Disabling)
  Sender: FDA-Public Use
  Company Number: 2012AP004430

PATIENT
  Age: 81 Year
  Sex: Male

DRUGS (11)
  1. RAMIPRIL (RAMIPRIL) [Suspect]
     Indication: ATRIAL FIBRILLATION
     Route: 048
     Dates: start: 20121109
  2. RAMIPRIL (RAMIPRIL) [Suspect]
     Indication: HYPERTENSION
     Route: 048
     Dates: start: 20121109
  3. ASACOL (MESALAZINE) [Concomitant]
  4. ATORVASTATIN (ATORVASTATIN) [Concomitant]
  5. BISOPROLOL (BISOPROLOL) [Concomitant]
  6. CLOPIDOGREL (CLOPIDOGREL) [Concomitant]
  7. EPILIM CHRONO /00228502/ (VALPROATE SODIUM) [Concomitant]
  8. PARACETAMOL (PARACETAMOL) [Concomitant]
  9. PREDNISOLONE (PREDNISOLONE) [Concomitant]
  10. RANITIDINE (RANITIDINE) [Concomitant]
  11. WARFARIN (WARFARIN) [Concomitant]

REACTIONS (4)
  - Myalgia [None]
  - Pain in extremity [None]
  - Paraesthesia [None]
  - Fatigue [None]
